FAERS Safety Report 8523503-7 (Version None)
Quarter: 2012Q3

REPORT INFORMATION
  Report Type: 
  Country: None (occurrence: None)
  Receive Date: 20120716
  Receipt Date: 20120716
  Transmission Date: 20120928
  Serious: Yes (Other)
  Sender: FDA-Public Use
  Company Number: None

PATIENT
  Sex: Female
  Weight: 52.03 kg

DRUGS (1)
  1. FERAHEME [Suspect]
     Indication: IRON DEFICIENCY ANAEMIA
     Dosage: 510 MG -17ML GIVEN ONLY- ONCE IV
     Route: 042
     Dates: start: 20120330, end: 20120330

REACTIONS (6)
  - DIZZINESS [None]
  - NAUSEA [None]
  - INFUSION RELATED REACTION [None]
  - PRURITUS [None]
  - FLUSHING [None]
  - HYPOTENSION [None]
